FAERS Safety Report 13700520 (Version 1)
Quarter: 2017Q2

REPORT INFORMATION
  Report Type: Spontaneous
  Country: US (occurrence: US)
  Receive Date: 20170628
  Receipt Date: 20170628
  Transmission Date: 20170830
  Serious: Yes (Hospitalization)
  Sender: FDA-Public Use
  Company Number: None

PATIENT
  Age: 48 Year
  Sex: Female

DRUGS (1)
  1. TYKERB [Suspect]
     Active Substance: LAPATINIB DITOSYLATE

REACTIONS (8)
  - Diarrhoea [None]
  - Dizziness [None]
  - Dehydration [None]
  - Fluid intake reduced [None]
  - Dry skin [None]
  - Lethargy [None]
  - Hypersomnia [None]
  - Wound [None]

NARRATIVE: CASE EVENT DATE: 20170624
